FAERS Safety Report 17562713 (Version 2)
Quarter: 2020Q4

REPORT INFORMATION
  Report Type: Other
  Country: CA (occurrence: CA)
  Receive Date: 20200319
  Receipt Date: 20201019
  Transmission Date: 20210113
  Serious: Yes (Other)
  Sender: FDA-Public Use
  Company Number: CA-BECTON DICKINSON-2020BDN00091

PATIENT
  Age: 42 Year
  Sex: Female
  Weight: 81 kg

DRUGS (20)
  1. VITAMIN C [Concomitant]
     Active Substance: ASCORBIC ACID
  2. ETANERCEPT [Suspect]
     Active Substance: ETANERCEPT
  3. LEFLUNOMIDE. [Suspect]
     Active Substance: LEFLUNOMIDE
     Route: 048
  4. METHOTREXATE. [Suspect]
     Active Substance: METHOTREXATE
  5. DESOGESTREL [Concomitant]
     Active Substance: DESOGESTREL
  6. ERGOCALCIFEROL. [Concomitant]
     Active Substance: ERGOCALCIFEROL
  7. ZOPICLONE [Concomitant]
     Active Substance: ZOPICLONE
  8. CHLORHEXIDINE [Suspect]
     Active Substance: CHLORHEXIDINE
  9. ACETAMINOPHEN. [Suspect]
     Active Substance: ACETAMINOPHEN
  10. SIMPONI [Suspect]
     Active Substance: GOLIMUMAB
     Route: 058
  11. HYDROXYCHLOROQUINE [Concomitant]
     Active Substance: HYDROXYCHLOROQUINE
  12. PANTOPRAZOLE [Concomitant]
     Active Substance: PANTOPRAZOLE
  13. ORENCIA [Suspect]
     Active Substance: ABATACEPT
  14. ACTEMRA [Suspect]
     Active Substance: TOCILIZUMAB
  15. IBUPROFEN. [Concomitant]
     Active Substance: IBUPROFEN
  16. PREDNISONE. [Concomitant]
     Active Substance: PREDNISONE
  17. SALBUTAMOL [Concomitant]
     Active Substance: ALBUTEROL
  18. CIMZIA [Suspect]
     Active Substance: CERTOLIZUMAB PEGOL
     Dosage: 400 MG
     Route: 058
  19. OXYCODONE [Suspect]
     Active Substance: OXYCODONE
  20. REACTINE [Concomitant]

REACTIONS (20)
  - Joint swelling [Unknown]
  - Rash [Unknown]
  - Ear pain [Unknown]
  - Headache [Unknown]
  - Muscle spasticity [Unknown]
  - Back pain [Unknown]
  - Asthenia [Unknown]
  - Body temperature increased [Unknown]
  - Abdominal pain [Unknown]
  - Diarrhoea [Unknown]
  - Lower respiratory tract infection [Unknown]
  - Peripheral swelling [Unknown]
  - Night sweats [Unknown]
  - Respiratory disorder [Unknown]
  - Urticaria [Unknown]
  - Insomnia [Unknown]
  - Sinusitis [Unknown]
  - Pain [Unknown]
  - Pruritus [Unknown]
  - Vomiting [Unknown]
